FAERS Safety Report 5475538-9 (Version None)
Quarter: 2007Q3

REPORT INFORMATION
  Report Type: 
  Country: None (occurrence: None)
  Receive Date: 20070912
  Receipt Date: 20070518
  Transmission Date: 20080115
  Serious: Yes (Other)
  Sender: FDA-Public Use
  Company Number: 07C155

PATIENT
  Sex: Male

DRUGS (1)
  1. LIDOCAINE AND PRILOCAINE CREAM 2.5%/2.5% [Suspect]
     Dates: start: 20070518

REACTIONS (1)
  - DRUG INEFFECTIVE [None]
